FAERS Safety Report 7725130-8 (Version None)
Quarter: 2011Q3

REPORT INFORMATION
  Report Type: 
  Country: None (occurrence: None)
  Receive Date: 20110901
  Receipt Date: 20110823
  Transmission Date: 20111222
  Serious: Yes (Hospitalization)
  Sender: FDA-Public Use
  Company Number: US-US-EMD SERONO, INC.-7079312

PATIENT
  Sex: Female

DRUGS (1)
  1. REBIF [Suspect]
     Indication: MULTIPLE SCLEROSIS
     Route: 058
     Dates: start: 20110408, end: 20110701

REACTIONS (6)
  - PERONEAL NERVE PALSY [None]
  - CLOSTRIDIAL INFECTION [None]
  - FATIGUE [None]
  - MOBILITY DECREASED [None]
  - ASTHENIA [None]
  - ORGAN FAILURE [None]
